FAERS Safety Report 15715831 (Version 2)
Quarter: 2019Q1

REPORT INFORMATION
  Report Type: Spontaneous
  Country: GB (occurrence: GB)
  Receive Date: 20181212
  Receipt Date: 20190115
  Transmission Date: 20190417
  Serious: Yes (Other)
  Sender: FDA-Public Use
  Company Number: PHHY2018GB178000

PATIENT
  Sex: Male

DRUGS (4)
  1. TRILEPTAL [Suspect]
     Active Substance: OXCARBAZEPINE
     Dosage: 300 MG, UNK (OLD DESIGN)
     Route: 065
  2. TRILEPTAL [Suspect]
     Active Substance: OXCARBAZEPINE
     Dosage: 150 UNK, UNK (NEW DESIGN)
     Route: 065
  3. TRILEPTAL [Suspect]
     Active Substance: OXCARBAZEPINE
     Indication: PRODUCT USED FOR UNKNOWN INDICATION
     Dosage: 150 MG, UNK (OLD DESIGN)
     Route: 065
  4. TRILEPTAL [Suspect]
     Active Substance: OXCARBAZEPINE
     Dosage: 300 UNK, UNK (NEW DESIGN)
     Route: 065

REACTIONS (11)
  - Aggression [Unknown]
  - Schizophreniform disorder [Unknown]
  - Psychotic disorder [Unknown]
  - Abnormal behaviour [Unknown]
  - Drug hypersensitivity [Unknown]
  - Agitation [Unknown]
  - Seizure [Unknown]
  - Anxiety [Unknown]
  - Hunger [Unknown]
  - Psychomotor hyperactivity [Unknown]
  - Personality disorder [Unknown]
